FAERS Safety Report 6249562-2 (Version None)
Quarter: 2009Q2

REPORT INFORMATION
  Report Type: 
  Country: None (occurrence: None)
  Receive Date: 20090624
  Receipt Date: 20090528
  Transmission Date: 20091009
  Serious: Yes (Death)
  Sender: FDA-Public Use
  Company Number: F03200900056

PATIENT
  Age: 17 Year

DRUGS (6)
  1. OFORTA - (FLUDARABINE PHOSPHATE) [Suspect]
  2. (ALEMTUZUMAB) [Suspect]
  3. MELPHALAN HYDROCHLORIDE [Suspect]
  4. CO-TRIMAZOLE [Concomitant]
  5. CYCLOSPORINE [Concomitant]
  6. ITRACONAZOLE [Concomitant]

REACTIONS (8)
  - ASPERGILLOMA [None]
  - MULTI-ORGAN FAILURE [None]
  - PATHOGEN RESISTANCE [None]
  - PERICARDITIS [None]
  - PERICARDITIS FUNGAL [None]
  - PERINEPHRIC ABSCESS [None]
  - PULMONARY OEDEMA [None]
  - SYSTEMIC MYCOSIS [None]
